FAERS Safety Report 20647660 (Version 1)
Quarter: 2022Q1

REPORT INFORMATION
  Report Type: Spontaneous
  Country: US (occurrence: None)
  Receive Date: 20220328
  Receipt Date: 20220328
  Transmission Date: 20220423
  Serious: No
  Sender: FDA-Public Use
  Company Number: None

PATIENT
  Age: 83 Year
  Sex: Female
  Weight: 66.6 kg

DRUGS (8)
  1. CYCLOMYDRIL [Suspect]
     Active Substance: CYCLOPENTOLATE HYDROCHLORIDE\PHENYLEPHRINE HYDROCHLORIDE
     Indication: Cataract operation
     Dosage: OTHER QUANTITY : 1 DROP(S);?
     Route: 047
  2. ATORVASTATIN [Concomitant]
     Active Substance: ATORVASTATIN
  3. AMLODIPINE [Concomitant]
     Active Substance: AMLODIPINE BESYLATE
  4. LEVOTHYROXINE [Concomitant]
     Active Substance: LEVOTHYROXINE
  5. Aspirin 81mg DR/EC [Concomitant]
  6. metamucil 1 teaspoon daily [Concomitant]
  7. turmeric 15mL [Concomitant]
  8. centrum womens multivitamin [Concomitant]

REACTIONS (5)
  - Instillation site pain [None]
  - Instillation site pain [None]
  - Eye swelling [None]
  - Ocular hyperaemia [None]
  - Cataract [None]

NARRATIVE: CASE EVENT DATE: 20210909
